FAERS Safety Report 5902221-5 (Version None)
Quarter: 2008Q3

REPORT INFORMATION
  Report Type: 
  Country: None (occurrence: None)
  Receive Date: 20080929
  Receipt Date: 20080917
  Transmission Date: 20090109
  Serious: Yes (Other)
  Sender: FDA-Public Use
  Company Number: US-PFIZER INC-2008079987

PATIENT
  Sex: Female
  Weight: 70.5 kg

DRUGS (9)
  1. CHANTIX [Suspect]
     Indication: SMOKING CESSATION THERAPY
     Dates: start: 20080717, end: 20080915
  2. ATARAX [Concomitant]
  3. VALSARTAN [Concomitant]
     Dates: start: 20060101
  4. PREVACID [Concomitant]
     Dates: start: 20010101
  5. MULTI-VITAMINS [Concomitant]
  6. CALCIUM [Concomitant]
  7. MOBIC [Concomitant]
     Indication: OSTEOPOROSIS
  8. HYDROXYZINE [Concomitant]
  9. HYDROCHLOROTHIAZIDE [Concomitant]

REACTIONS (2)
  - ACTIVITIES OF DAILY LIVING IMPAIRED [None]
  - DEPRESSION [None]
